FAERS Safety Report 10044306 (Version 1)
Quarter: 2014Q1

REPORT INFORMATION
  Report Type: Spontaneous
  Country: US (occurrence: None)
  Receive Date: 20140306
  Receipt Date: 20140306
  Transmission Date: 20141002
  Serious: Yes (Hospitalization)
  Sender: FDA-Public Use
  Company Number: 163-21880-13070829

PATIENT
  Age: 74 Year
  Sex: Female

DRUGS (21)
  1. REVLIMID (LENALIDOMIDE) (25 MILLIGRAM, CAPSULES) [Suspect]
     Indication: PLASMA CELL MYELOMA
     Dosage: 14 IN 14 D
     Route: 048
     Dates: start: 201201
  2. RESTASIS (CICLOSPORIN) [Concomitant]
  3. SINGULAIR (MONTELUKAST SODIUM) TABLET [Concomitant]
  4. LIPITOR (ATORVASTATIN) [Concomitant]
  5. AVELOX (MOXIFLOXACIN HYDROCHLORIDE) [Concomitant]
  6. AMOX TR-K CLV [Concomitant]
  7. VENLAFAXINE HCL (VENLAFAXINE HYDROCHLORIDE) [Concomitant]
  8. ACYCLOVIR [Concomitant]
  9. PROCHLORPERAZINE [Concomitant]
  10. DEXAMETHASONE [Concomitant]
  11. CIPROFLOXACIN HCL (CIPROFLOXACIN HYDROCHLORIDE) [Concomitant]
  12. ASPIRIN (ACETYLSALICYLIC ACID) [Concomitant]
  13. PULMICORT (BUDESONIDE) [Concomitant]
  14. OXYCODONE-ACETAMINOPHEN (OXYCOCET) [Concomitant]
  15. FLAGYL (METRONIDAZOLE) [Concomitant]
  16. SPIRIVA HANDIHALER (TIOTROPIUM BROMIDE) [Concomitant]
  17. DOK [Concomitant]
  18. METOPROLOL SUCCINATE [Concomitant]
  19. ZYLET [Concomitant]
  20. AZASITE  (AZITHROMYCIN) [Concomitant]
  21. TRILYTE [Concomitant]

REACTIONS (2)
  - Hip fracture [None]
  - Fall [None]
